FAERS Safety Report 22115982 (Version 1)
Quarter: 2023Q1

REPORT INFORMATION
  Report Type: Spontaneous
  Country: US (occurrence: None)
  Receive Date: 20230319
  Receipt Date: 20230319
  Transmission Date: 20230417
  Serious: Yes (Other)
  Sender: FDA-Public Use
  Company Number: None

PATIENT
  Age: 79 Year
  Sex: Female
  Weight: 72.9 kg

DRUGS (1)
  1. SIMPONI ARIA [Suspect]
     Active Substance: GOLIMUMAB
     Indication: Rheumatoid arthritis

REACTIONS (5)
  - Malignant melanoma [None]
  - Rash [None]
  - Keratitis [None]
  - Therapy cessation [None]
  - Benign neoplasm of skin [None]

NARRATIVE: CASE EVENT DATE: 20221212
